FAERS Safety Report 8045783-7 (Version None)
Quarter: 2012Q1

REPORT INFORMATION
  Report Type: 
  Country: None (occurrence: None)
  Receive Date: 20120113
  Receipt Date: 20120109
  Transmission Date: 20120608
  Serious: Yes (Death, Hospitalization)
  Sender: FDA-Public Use
  Company Number: US-SANOFI-AVENTIS-2012SA001508

PATIENT
  Age: 57 Year
  Sex: Female
  Weight: 78.46 kg

DRUGS (8)
  1. ALBUTEROL [Concomitant]
     Dates: start: 20111209
  2. BLINDED THERAPY [Suspect]
     Indication: NON-SMALL CELL LUNG CANCER STAGE IV
     Route: 065
     Dates: start: 20111115, end: 20111206
  3. LORAZEPAM [Concomitant]
     Indication: ANXIETY
     Dates: start: 20110524
  4. OXYCODONE HCL AND ACETAMINOPHEN [Concomitant]
     Indication: PAIN
     Dates: start: 20110614
  5. PROCHLORPERAZINE [Concomitant]
     Indication: NAUSEA
     Dates: start: 20111107
  6. ESOMEPRAZOLE SODIUM [Concomitant]
     Dates: start: 20110614
  7. DOCETAXEL [Suspect]
     Indication: NON-SMALL CELL LUNG CANCER STAGE IV
     Route: 042
     Dates: start: 20111115, end: 20111206
  8. OXYCODONE HCL [Concomitant]
     Indication: PAIN
     Dates: start: 20111024

REACTIONS (4)
  - PNEUMONIA [None]
  - RESPIRATORY FAILURE [None]
  - FATIGUE [None]
  - THROMBOCYTOPENIA [None]
